FAERS Safety Report 24462995 (Version 3)
Quarter: 2024Q4

REPORT INFORMATION
  Report Type: Spontaneous
  Country: US (occurrence: US)
  Receive Date: 20241018
  Receipt Date: 20241118
  Transmission Date: 20250114
  Serious: Yes (Other)
  Sender: BIOVITRUM
  Company Number: US-BIOVITRUM-2024-US-013352

PATIENT
  Age: 83 Year
  Sex: Male

DRUGS (12)
  1. VONJO [Suspect]
     Active Substance: PACRITINIB
     Indication: Myelofibrosis
     Dosage: 2 CAPSULES TWICE DAILY
     Route: 048
     Dates: start: 20240924
  2. VONJO [Suspect]
     Active Substance: PACRITINIB
     Dosage: TWICE DAILY
     Route: 048
     Dates: start: 20240925
  3. VONJO [Suspect]
     Active Substance: PACRITINIB
     Dosage: TWICE DAILY
  4. VONJO [Suspect]
     Active Substance: PACRITINIB
     Dosage: TWICE DAILY
     Route: 048
     Dates: start: 20241107
  5. MULTI FOR HIM [MULTIVITS W-CA, OTHER MI /IRON FUMARATE/FA/VIT D3/LYCOP [Concomitant]
     Indication: Product used for unknown indication
  6. VITAMIN B12 [Concomitant]
     Active Substance: CYANOCOBALAMIN
     Indication: Product used for unknown indication
  7. LEVOTHYROXINE [Concomitant]
     Active Substance: LEVOTHYROXINE
     Indication: Product used for unknown indication
  8. FLOMAX [Concomitant]
     Active Substance: TAMSULOSIN HYDROCHLORIDE
     Indication: Product used for unknown indication
  9. KEPPRA [Concomitant]
     Active Substance: LEVETIRACETAM
     Indication: Product used for unknown indication
  10. VITAMIN D3 [Concomitant]
     Active Substance: CHOLECALCIFEROL
     Indication: Product used for unknown indication
  11. STOOL SOFTENER (DOCUSATE) [Concomitant]
     Active Substance: DOCUSATE
     Indication: Product used for unknown indication
  12. IRON (FERROUS SULFATE) [Concomitant]
     Indication: Product used for unknown indication

REACTIONS (4)
  - Diarrhoea [Unknown]
  - Nausea [Unknown]
  - Dizziness [Unknown]
  - Loss of consciousness [Unknown]
